FAERS Safety Report 9431661 (Version 1)
Quarter: 2013Q3

REPORT INFORMATION
  Report Type: Spontaneous
  Country: US (occurrence: US)
  Receive Date: 20130731
  Receipt Date: 20130731
  Transmission Date: 20140515
  Serious: No
  Sender: FDA-Public Use
  Company Number: US-BIOGENIDEC-2013BI069745

PATIENT
  Sex: Female

DRUGS (5)
  1. AVONEX [Suspect]
     Indication: MULTIPLE SCLEROSIS
     Route: 030
     Dates: start: 20110310
  2. INDERAL I.A. [Concomitant]
  3. FERROUS SULFATE [Concomitant]
  4. AMITRIPTYLINE HCL [Concomitant]
  5. MOBIC [Concomitant]

REACTIONS (2)
  - Blood count abnormal [Unknown]
  - Iron deficiency [Unknown]
